FAERS Safety Report 12878696 (Version 1)
Quarter: 2016Q4

REPORT INFORMATION
  Report Type: Report from Study
  Country: None (occurrence: ES)
  Receive Date: 20161024
  Receipt Date: 20161024
  Transmission Date: 20170207
  Serious: Yes (Hospitalization, Other)
  Sender: FDA-Public Use
  Company Number: ES-ABBVIE-16P-144-1756879-00

PATIENT
  Age: 67 Year
  Sex: Female

DRUGS (2)
  1. DUODOPA [Suspect]
     Active Substance: CARBIDOPA\LEVODOPA
     Indication: PARKINSON^S DISEASE
     Dosage: 16H/DAY
     Route: 050
     Dates: start: 20160721
  2. SINTROM [Concomitant]
     Active Substance: ACENOCOUMAROL
     Indication: PRODUCT USED FOR UNKNOWN INDICATION

REACTIONS (4)
  - Epistaxis [Recovered/Resolved]
  - Facial bones fracture [Recovering/Resolving]
  - Fall [Recovering/Resolving]
  - On and off phenomenon [Recovering/Resolving]

NARRATIVE: CASE EVENT DATE: 20161008
